FAERS Safety Report 16902594 (Version 1)
Quarter: 2019Q4

REPORT INFORMATION
  Report Type: Spontaneous
  Country: US (occurrence: US)
  Receive Date: 20191010
  Receipt Date: 20191010
  Transmission Date: 20200122
  Serious: Yes (Hospitalization)
  Sender: FDA-Public Use
  Company Number: US-GW PHARMA-201909USGW3635

PATIENT

DRUGS (1)
  1. EPIDIOLEX [Suspect]
     Active Substance: CANNABIDIOL
     Indication: LENNOX-GASTAUT SYNDROME
     Dosage: 400 MILLIGRAM, BID
     Route: 048
     Dates: start: 20190124

REACTIONS (6)
  - Contusion [Unknown]
  - Seizure [Unknown]
  - Fall [Unknown]
  - Complication associated with device [Unknown]
  - Abdominal operation [Unknown]
  - Choking [Unknown]

NARRATIVE: CASE EVENT DATE: 20190926
